FAERS Safety Report 13625845 (Version 1)
Quarter: 2017Q2

REPORT INFORMATION
  Report Type: Spontaneous
  Country: US (occurrence: US)
  Receive Date: 20170531
  Receipt Date: 20170531
  Transmission Date: 20170830
  Serious: Yes (Death)
  Sender: FDA-Public Use
  Company Number: US-ASTELLAS-1015783

PATIENT
  Sex: Female

DRUGS (10)
  1. VINORELBINE [Concomitant]
     Active Substance: VINORELBINE\VINORELBINE TARTRATE
  2. GEMCITABINE [Concomitant]
     Active Substance: GEMCITABINE\GEMCITABINE HYDROCHLORIDE
  3. IRINOTECAN [Concomitant]
     Active Substance: IRINOTECAN
  4. CARBOPLATIN. [Concomitant]
     Active Substance: CARBOPLATIN
  5. NEUPOGEN [Suspect]
     Active Substance: FILGRASTIM
     Indication: NEUTROPENIA
     Route: 065
     Dates: start: 201102
  6. PEMETREXED. [Concomitant]
     Active Substance: PEMETREXED
  7. ERLOTINIB [Suspect]
     Active Substance: ERLOTINIB
     Indication: LUNG NEOPLASM MALIGNANT
     Route: 065
  8. DOCETAXEL. [Concomitant]
     Active Substance: DOCETAXEL
  9. TAXOL [Concomitant]
     Active Substance: PACLITAXEL
  10. BEVACIZUMAB [Concomitant]
     Active Substance: BEVACIZUMAB

REACTIONS (2)
  - Lung neoplasm malignant [Fatal]
  - Neutropenia [Unknown]
